FAERS Safety Report 20191443 (Version 2)
Quarter: 2022Q1

REPORT INFORMATION
  Report Type: Other
  Country: US (occurrence: US)
  Receive Date: 20211216
  Receipt Date: 20220105
  Transmission Date: 20220423
  Serious: Yes (Hospitalization, Other)
  Sender: FDA-Public Use
  Company Number: US-INTERCEPT-PM2021003427

PATIENT
  Sex: Female

DRUGS (1)
  1. OCALIVA [Suspect]
     Active Substance: OBETICHOLIC ACID
     Indication: Primary biliary cholangitis
     Dosage: 5 MILLIGRAM, QD
     Route: 048
     Dates: start: 201904

REACTIONS (7)
  - Bile duct stone [Unknown]
  - Pulmonary congestion [Unknown]
  - Intestinal stent insertion [Recovered/Resolved]
  - Sinus congestion [Unknown]
  - Musculoskeletal chest pain [Unknown]
  - Flatulence [Unknown]
  - Intestinal stent removal [Recovered/Resolved]

NARRATIVE: CASE EVENT DATE: 20210101
